FAERS Safety Report 10209533 (Version 1)
Quarter: 2014Q2

REPORT INFORMATION
  Report Type: Report from Study
  Country: US (occurrence: US)
  Receive Date: 20140602
  Receipt Date: 20140602
  Transmission Date: 20141212
  Serious: Yes (Other)
  Sender: FDA-Public Use
  Company Number: US-ROCHE-1340243

PATIENT
  Sex: Female

DRUGS (4)
  1. LUCENTIS [Suspect]
     Indication: AGE-RELATED MACULAR DEGENERATION
     Dosage: RECEIVED ON 19/MAY/2011, 30/JUN/2011, 11/AUG/2011,  07/OCT/2011, 01/DEC/2011
     Route: 050
  2. LUCENTIS [Suspect]
     Route: 065
  3. AVASTIN [Suspect]
     Indication: PRODUCT USED FOR UNKNOWN INDICATION
     Route: 065
  4. ACULAR [Concomitant]
     Dosage: 1 GTT AS NEEDED
     Route: 065

REACTIONS (5)
  - Ocular hyperaemia [Unknown]
  - Retinal disorder [Unknown]
  - Glare [Unknown]
  - Photophobia [Unknown]
  - Hyperaesthesia [Unknown]
